FAERS Safety Report 8373324-3 (Version None)
Quarter: 2012Q2

REPORT INFORMATION
  Report Type: 
  Country: None (occurrence: None)
  Receive Date: 20120521
  Receipt Date: 20110627
  Transmission Date: 20120825
  Serious: No
  Sender: FDA-Public Use
  Company Number: US-TEVA-2011002395

PATIENT
  Sex: Female
  Weight: 60.382 kg

DRUGS (1)
  1. TREANDA [Suspect]
     Route: 042
     Dates: start: 20110221, end: 20110517

REACTIONS (4)
  - INFUSION SITE ERYTHEMA [None]
  - INFUSION SITE WARMTH [None]
  - INFUSION SITE SWELLING [None]
  - INFUSION SITE PAIN [None]
